FAERS Safety Report 12890216 (Version 1)
Quarter: 2016Q4

REPORT INFORMATION
  Report Type: Spontaneous
  Country: CN (occurrence: CN)
  Receive Date: 20161027
  Receipt Date: 20161027
  Transmission Date: 20170207
  Serious: Yes (Hospitalization, Other)
  Sender: FDA-Public Use
  Company Number: CN-GILEAD-2016-0239442

PATIENT
  Age: 55 Year
  Sex: Male

DRUGS (1)
  1. HEPSERA [Suspect]
     Active Substance: ADEFOVIR DIPIVOXIL
     Indication: HEPATITIS B
     Dosage: 10 MG, QD
     Route: 048

REACTIONS (16)
  - Pain in extremity [Not Recovered/Not Resolved]
  - Nerve injury [Not Recovered/Not Resolved]
  - Back pain [Not Recovered/Not Resolved]
  - Intermittent claudication [Not Recovered/Not Resolved]
  - Osteomalacia [Not Recovered/Not Resolved]
  - Pain in extremity [Unknown]
  - Underweight [Not Recovered/Not Resolved]
  - Spinal deformity [Not Recovered/Not Resolved]
  - Chest pain [Unknown]
  - Peripheral coldness [Not Recovered/Not Resolved]
  - Hypophosphataemia [Not Recovered/Not Resolved]
  - Body height decreased [Not Recovered/Not Resolved]
  - Movement disorder [Not Recovered/Not Resolved]
  - Asthenia [Not Recovered/Not Resolved]
  - Renal impairment [Not Recovered/Not Resolved]
  - Weight decreased [Not Recovered/Not Resolved]

NARRATIVE: CASE EVENT DATE: 201204
